FAERS Safety Report 5697096-6 (Version None)
Quarter: 2008Q2

REPORT INFORMATION
  Report Type: 
  Country: None (occurrence: None)
  Receive Date: 20080408
  Receipt Date: 20070515
  Transmission Date: 20081010
  Serious: No
  Sender: FDA-Public Use
  Company Number: US-BAYER-US-2007-017579

PATIENT
  Age: 33 Year
  Sex: Female

DRUGS (2)
  1. YASMIN [Suspect]
     Route: 048
     Dates: start: 20070101
  2. VITAMINS NOS [Concomitant]

REACTIONS (2)
  - ABDOMINAL PAIN LOWER [None]
  - AMENORRHOEA [None]
